FAERS Safety Report 8117291-6 (Version None)
Quarter: 2012Q1

REPORT INFORMATION
  Report Type: 
  Country: None (occurrence: None)
  Receive Date: 20120206
  Receipt Date: 20120130
  Transmission Date: 20120608
  Serious: Yes (Hospitalization)
  Sender: FDA-Public Use
  Company Number: US-ASTRAZENECA-2012SE06386

PATIENT
  Age: 53 Year
  Sex: Male
  Weight: 93 kg

DRUGS (5)
  1. SEROQUEL [Suspect]
     Indication: SLEEP DISORDER
     Route: 048
  2. CLONIPINE [Concomitant]
  3. BP MEDICATION [Concomitant]
  4. CELEXA [Concomitant]
  5. SEROQUEL [Suspect]
     Indication: BIPOLAR DISORDER
     Route: 048

REACTIONS (5)
  - ADVERSE EVENT [None]
  - INSOMNIA [None]
  - OFF LABEL USE [None]
  - CEREBRAL HAEMORRHAGE [None]
  - DRUG DOSE OMISSION [None]
